FAERS Safety Report 5381289-1 (Version None)
Quarter: 2007Q3

REPORT INFORMATION
  Report Type: 
  Country: None (occurrence: None)
  Receive Date: 20070702
  Receipt Date: 20060605
  Transmission Date: 20080115
  Serious: Yes (Hospitalization)
  Sender: FDA-Public Use
  Company Number: SUS1-2006-00519

PATIENT
  Age: 30 Year
  Sex: Male

DRUGS (2)
  1. PENTASA [Suspect]
     Indication: DRUG HYPERSENSITIVITY
     Dosage: ORAL
     Route: 048
     Dates: end: 20060407
  2. SUCRALFATE [Concomitant]

REACTIONS (1)
  - DRUG HYPERSENSITIVITY [None]
